FAERS Safety Report 18973423 (Version 1)
Quarter: 2021Q1

REPORT INFORMATION
  Report Type: Spontaneous
  Country: IL (occurrence: IL)
  Receive Date: 20210305
  Receipt Date: 20210305
  Transmission Date: 20210420
  Serious: Yes (Other)
  Sender: FDA-Public Use
  Company Number: IL-GLAXOSMITHKLINE-IL2021EME056924

PATIENT
  Age: 76 Year
  Sex: Female

DRUGS (1)
  1. ZEJULA [Suspect]
     Active Substance: NIRAPARIB
     Indication: PRODUCT USED FOR UNKNOWN INDICATION
     Dosage: UNK
     Dates: start: 20210221

REACTIONS (13)
  - Heart rate increased [Unknown]
  - Hypertension [Unknown]
  - Feeling abnormal [Unknown]
  - Productive cough [Unknown]
  - Condition aggravated [Unknown]
  - Vomiting [Unknown]
  - Near death experience [Unknown]
  - Feeling hot [Unknown]
  - Syncope [Unknown]
  - Dyspnoea [Unknown]
  - Malaise [Unknown]
  - Asthenia [Unknown]
  - Balance disorder [Unknown]
